FAERS Safety Report 7374011-0 (Version None)
Quarter: 2011Q1

REPORT INFORMATION
  Report Type: 
  Country: None (occurrence: None)
  Receive Date: 20110325
  Receipt Date: 20110322
  Transmission Date: 20110831
  Serious: Yes (Other)
  Sender: FDA-Public Use
  Company Number: US-PFIZER INC-2011063636

PATIENT
  Sex: Female
  Weight: 83.9 kg

DRUGS (2)
  1. ADVIL CONGESTION RELIEF [Suspect]
     Indication: SINUS CONGESTION
     Dosage: UNK
     Route: 048
     Dates: end: 20110301
  2. ACETYLSALICYLIC ACID [Concomitant]
     Indication: HEART RATE DECREASED
     Dosage: UNK

REACTIONS (1)
  - HEART RATE IRREGULAR [None]
